FAERS Safety Report 4420855-4 (Version None)
Quarter: 2004Q3

REPORT INFORMATION
  Report Type: 
  Country: None (occurrence: None)
  Receive Date: 20040809
  Receipt Date: 20040804
  Transmission Date: 20050211
  Serious: Yes (Life-Threatening)
  Sender: FDA-Public Use
  Company Number: 200412934FR

PATIENT
  Age: 86 Year
  Sex: Female

DRUGS (5)
  1. LOVENOX [Suspect]
     Route: 058
     Dates: start: 20040610, end: 20040713
  2. TRAMADOL HCL [Concomitant]
     Route: 048
     Dates: start: 20040610, end: 20040611
  3. TARDYFERON [Concomitant]
     Dosage: DOSE UNIT: UNITS
     Route: 048
  4. ACETAMINOPHEN [Concomitant]
     Dosage: DOSE UNIT: UNITS
     Route: 048
  5. CEFAZOLINE SODIQUE [Concomitant]
     Route: 048

REACTIONS (3)
  - CEREBROVASCULAR ACCIDENT [None]
  - HEMIPARESIS [None]
  - POST PROCEDURAL COMPLICATION [None]
